FAERS Safety Report 8487417-3 (Version None)
Quarter: 2012Q3

REPORT INFORMATION
  Report Type: 
  Country: None (occurrence: None)
  Receive Date: 20120705
  Receipt Date: 20120626
  Transmission Date: 20120928
  Serious: Yes (Hospitalization)
  Sender: FDA-Public Use
  Company Number: FR-ELI_LILLY_AND_COMPANY-FR201206008049

PATIENT
  Sex: Female

DRUGS (15)
  1. GEMZAR [Suspect]
     Dosage: 1120 MG, UNK
     Dates: start: 20120430
  2. IXEL [Concomitant]
  3. VITAMIN B KOMPLEX [Concomitant]
  4. PREDNISOLONE [Concomitant]
  5. CELECTOL [Concomitant]
  6. NEXIUM [Concomitant]
  7. INNOHEP [Concomitant]
  8. PRIMPERAN TAB [Concomitant]
     Dosage: UNK
  9. LEXOMIL [Concomitant]
  10. THERALENE [Concomitant]
  11. DURAGESIC-100 [Concomitant]
  12. OXAZEPAM [Concomitant]
  13. OXYNIUM [Concomitant]
  14. GEMZAR [Suspect]
     Indication: PANCREATIC CARCINOMA
     Dosage: 1400 MG, UNK
     Dates: start: 20120220, end: 20120430
  15. FLUVASTATIN SODIUM [Concomitant]

REACTIONS (6)
  - ASTHENIA [None]
  - ABDOMINAL PAIN [None]
  - NAUSEA [None]
  - BLOOD POTASSIUM DECREASED [None]
  - DECREASED APPETITE [None]
  - VOMITING [None]
